FAERS Safety Report 7322657-8 (Version None)
Quarter: 2011Q1

REPORT INFORMATION
  Report Type: 
  Country: None (occurrence: None)
  Receive Date: 20110301
  Receipt Date: 20110222
  Transmission Date: 20110831
  Serious: No
  Sender: FDA-Public Use
  Company Number: US-PFIZER INC-2011039557

PATIENT
  Sex: Male

DRUGS (2)
  1. PRISTIQ [Suspect]
     Dosage: 50 MG FOR 4 +1/2 WEEKS
     Dates: start: 20110101
  2. PROZAC [Suspect]
     Dosage: UNK

REACTIONS (2)
  - NERVOUSNESS [None]
  - POOR QUALITY SLEEP [None]
